FAERS Safety Report 4972022-3 (Version None)
Quarter: 2006Q2

REPORT INFORMATION
  Report Type: 
  Country: None (occurrence: None)
  Receive Date: 20060412
  Receipt Date: 20060412
  Transmission Date: 20061013
  Serious: Yes (Other)
  Sender: FDA-Public Use
  Company Number: None

PATIENT
  Age: 45 Year
  Sex: Female
  Weight: 146.0582 kg

DRUGS (1)
  1. INFED [Suspect]
     Indication: IRON DEFICIENCY ANAEMIA
     Dosage: 125 MG WEEKLY IV
     Route: 042
     Dates: start: 20060404, end: 20060406

REACTIONS (2)
  - ABDOMINAL PAIN UPPER [None]
  - INFUSION RELATED REACTION [None]
